FAERS Safety Report 5756245-1 (Version None)
Quarter: 2008Q2

REPORT INFORMATION
  Report Type: 
  Country: None (occurrence: None)
  Receive Date: 20080602
  Receipt Date: 20080521
  Transmission Date: 20081010
  Serious: Yes (Other)
  Sender: FDA-Public Use
  Company Number: US-PFIZER INC-2008044118

PATIENT
  Sex: Female
  Weight: 37.2 kg

DRUGS (5)
  1. CHANTIX [Suspect]
     Indication: SMOKING CESSATION THERAPY
     Dates: start: 20080411, end: 20080501
  2. TRAZODONE HCL [Concomitant]
  3. ATENOLOL [Concomitant]
  4. VALSARTAN [Concomitant]
  5. AMLODIPINE [Concomitant]

REACTIONS (4)
  - ABDOMINAL PAIN UPPER [None]
  - ANOREXIA [None]
  - PAROSMIA [None]
  - WEIGHT DECREASED [None]
